FAERS Safety Report 6064322-3 (Version None)
Quarter: 2009Q1

REPORT INFORMATION
  Report Type: 
  Country: None (occurrence: None)
  Receive Date: 20090203
  Receipt Date: 20090203
  Transmission Date: 20090719
  Serious: No
  Sender: FDA-Public Use
  Company Number: None

PATIENT
  Sex: Male

DRUGS (8)
  1. ROXICODONE [Suspect]
  2. DILAUDID [Suspect]
  3. ASPIRIN [Concomitant]
  4. MOBIC [Concomitant]
  5. PLAVIX [Concomitant]
  6. NEURONTIN [Concomitant]
  7. WELLBUTRIN [Concomitant]
  8. FLOMAX [Concomitant]

REACTIONS (3)
  - DRUG INEFFECTIVE [None]
  - FEAR [None]
  - FEELING ABNORMAL [None]
